FAERS Safety Report 7426784-6 (Version None)
Quarter: 2011Q2

REPORT INFORMATION
  Report Type: 
  Country: None (occurrence: None)
  Receive Date: 20110420
  Receipt Date: 20110414
  Transmission Date: 20111010
  Serious: Yes (Other)
  Sender: FDA-Public Use
  Company Number: FR-MERCK-1104FRA00075

PATIENT
  Age: 9 Year
  Sex: Male
  Weight: 38 kg

DRUGS (2)
  1. STROMECTOL [Suspect]
     Indication: ACARODERMATITIS
     Route: 048
     Dates: start: 20101001, end: 20101001
  2. BENZYL BENZOATE [Concomitant]
     Indication: ACARODERMATITIS
     Route: 061

REACTIONS (1)
  - MANIA [None]
